FAERS Safety Report 5305852-9 (Version None)
Quarter: 2007Q1

REPORT INFORMATION
  Report Type: 
  Country: None (occurrence: None)
  Receive Date: 20070201
  Receipt Date: 20061109
  Transmission Date: 20070707
  Serious: No
  Sender: FDA-Public Use
  Company Number: 2006PV024917

PATIENT
  Age: 57 Year
  Sex: Female

DRUGS (7)
  1. BYETTA [Suspect]
     Indication: DIABETES MELLITUS
     Dosage: SC
     Route: 058
     Dates: start: 20060801
  2. GLYBURIDE [Concomitant]
  3. LASIX [Concomitant]
  4. VYTORIN [Concomitant]
  5. ALTACE [Concomitant]
  6. CALCIUM CHLORIDE [Concomitant]
  7. ASPIRIN [Concomitant]

REACTIONS (1)
  - LICHEN PLANUS [None]
